FAERS Safety Report 14526906 (Version 1)
Quarter: 2018Q1

REPORT INFORMATION
  Report Type: Spontaneous
  Country: US (occurrence: US)
  Receive Date: 20180212
  Receipt Date: 20180212
  Transmission Date: 20180509
  Serious: No
  Sender: FDA-Public Use
  Company Number: None

PATIENT

DRUGS (2)
  1. TCA [Concomitant]
  2. QUETIAPINE. [Suspect]
     Active Substance: QUETIAPINE

REACTIONS (4)
  - Hypotension [None]
  - Electrocardiogram QT prolonged [None]
  - Bradycardia [None]
  - Therapy cessation [None]
